FAERS Safety Report 4779043-4 (Version None)
Quarter: 2005Q3

REPORT INFORMATION
  Report Type: 
  Country: None (occurrence: None)
  Receive Date: 20050923
  Receipt Date: 20050912
  Transmission Date: 20060218
  Serious: Yes (Hospitalization)
  Sender: FDA-Public Use
  Company Number: 2005127920

PATIENT
  Age: 66 Year
  Sex: Male

DRUGS (3)
  1. CABERGOLINE [Suspect]
     Indication: PARKINSON'S DISEASE
     Dosage: 0.5 MG (DAILY); ORAL
     Route: 048
     Dates: start: 20020903, end: 20040401
  2. TOLTERODINE TARTRATE [Concomitant]
  3. ASPIRIN [Concomitant]

REACTIONS (10)
  - AORTIC VALVE INCOMPETENCE [None]
  - ATRIAL FIBRILLATION [None]
  - BLOOD PRESSURE INCREASED [None]
  - CARDIAC MURMUR [None]
  - ERECTILE DYSFUNCTION [None]
  - EYE DISORDER [None]
  - HALLUCINATION, VISUAL [None]
  - MITRAL VALVE INCOMPETENCE [None]
  - MYOCARDIAL INFARCTION [None]
  - PERIPHERAL COLDNESS [None]
